FAERS Safety Report 8389090-1 (Version None)
Quarter: 2012Q2

REPORT INFORMATION
  Report Type: 
  Country: None (occurrence: None)
  Receive Date: 20120528
  Receipt Date: 20120514
  Transmission Date: 20120825
  Serious: Yes (Hospitalization)
  Sender: FDA-Public Use
  Company Number: PHHY2012FR044698

PATIENT
  Sex: Male

DRUGS (2)
  1. CIBADREX [Suspect]
     Route: 048
     Dates: start: 19940101, end: 20111022
  2. TRANDATE [Concomitant]

REACTIONS (7)
  - DYSPHAGIA [None]
  - APHONIA [None]
  - TONGUE OEDEMA [None]
  - ENTEROCOCCAL INFECTION [None]
  - PROTRUSION TONGUE [None]
  - SALIVARY HYPERSECRETION [None]
  - ANGIOEDEMA [None]
